FAERS Safety Report 6930614-6 (Version None)
Quarter: 2010Q3

REPORT INFORMATION
  Report Type: 
  Country: None (occurrence: None)
  Receive Date: 20100818
  Receipt Date: 20100812
  Transmission Date: 20110219
  Serious: Yes (Life-Threatening, Hospitalization)
  Sender: FDA-Public Use
  Company Number: PT-MERCK-1008PRT00002

PATIENT
  Age: 79 Year
  Sex: Female
  Weight: 55 kg

DRUGS (6)
  1. JANUMET [Suspect]
     Indication: TYPE 2 DIABETES MELLITUS
     Route: 048
     Dates: start: 20100101, end: 20100727
  2. FUROSEMIDE [Concomitant]
     Indication: OEDEMA
     Route: 048
     Dates: end: 20100722
  3. ALISKIREN FUMARATE [Concomitant]
     Indication: HYPERTENSION
     Route: 048
     Dates: end: 20100722
  4. ROSUVASTATIN CALCIUM [Concomitant]
     Indication: DYSLIPIDAEMIA
     Route: 048
     Dates: end: 20100722
  5. LERCANIDIPINE HYDROCHLORIDE [Concomitant]
     Indication: HYPERTENSION
     Route: 048
     Dates: end: 20100722
  6. AMIODARONE [Concomitant]
     Indication: ATRIAL FIBRILLATION
     Route: 048

REACTIONS (2)
  - LACTIC ACIDOSIS [None]
  - RENAL FAILURE ACUTE [None]
